FAERS Safety Report 14869945 (Version 1)
Quarter: 2018Q2

REPORT INFORMATION
  Report Type: Spontaneous
  Country: US (occurrence: US)
  Receive Date: 20180509
  Receipt Date: 20180509
  Transmission Date: 20180711
  Serious: No
  Sender: FDA-Public Use
  Company Number: US-BEH-2018090519

PATIENT
  Age: 8 Year
  Sex: Male
  Weight: 20.86 kg

DRUGS (17)
  1. ACETAMINOPHEN. [Concomitant]
     Active Substance: ACETAMINOPHEN
  2. POTASSIUM [Concomitant]
     Active Substance: POTASSIUM
  3. LMX                                /00033401/ [Concomitant]
  4. PRIVIGEN [Suspect]
     Active Substance: HUMAN IMMUNOGLOBULIN G
     Indication: ENCEPHALOMYELITIS
     Dosage: 20 G, TOT
     Route: 042
  5. KEPPRA [Concomitant]
     Active Substance: LEVETIRACETAM
  6. HEPARIN [Concomitant]
     Active Substance: HEPARIN SODIUM
  7. OMEPRAZOLE. [Concomitant]
     Active Substance: OMEPRAZOLE
  8. PRIVIGEN [Suspect]
     Active Substance: HUMAN IMMUNOGLOBULIN G
     Indication: POLYNEUROPATHY
     Dosage: 20 G, QMT
     Route: 042
     Dates: start: 20130409
  9. BUDESONIDE. [Concomitant]
     Active Substance: BUDESONIDE
  10. TRIHEXYPHENIDYL [Concomitant]
     Active Substance: TRIHEXYPHENIDYL
  11. SODIUM CHLORIDE. [Concomitant]
     Active Substance: SODIUM CHLORIDE
  12. ALBUTEROL SULFATE. [Concomitant]
     Active Substance: ALBUTEROL SULFATE
  13. BACLOFEN. [Concomitant]
     Active Substance: BACLOFEN
  14. LIOTHYRONINE [Concomitant]
     Active Substance: LIOTHYRONINE
  15. DIPHENHYDRAMINE. [Concomitant]
     Active Substance: DIPHENHYDRAMINE
  16. NORMAL SALINE [Concomitant]
     Active Substance: SODIUM CHLORIDE
  17. EPINEPHRINE. [Concomitant]
     Active Substance: EPINEPHRINE

REACTIONS (1)
  - Surgery [Unknown]

NARRATIVE: CASE EVENT DATE: 20180507
